FAERS Safety Report 8004866-8 (Version None)
Quarter: 2011Q4

REPORT INFORMATION
  Report Type: 
  Country: None (occurrence: None)
  Receive Date: 20111223
  Receipt Date: 20111223
  Transmission Date: 20120403
  Serious: Yes (Other)
  Sender: FDA-Public Use
  Company Number: None

PATIENT
  Age: 22 Year
  Sex: Male
  Weight: 97.522 kg

DRUGS (1)
  1. LARIAM [Suspect]

REACTIONS (1)
  - UNEVALUABLE EVENT [None]
